FAERS Safety Report 8973914 (Version 2)
Quarter: 2013Q1

REPORT INFORMATION
  Report Type: Report from Study
  Country: DE (occurrence: DE)
  Receive Date: 20121218
  Receipt Date: 20130221
  Transmission Date: 20140127
  Serious: Yes (Hospitalization)
  Sender: FDA-Public Use
  Company Number: DE-GLAXOSMITHKLINE-B0852931A

PATIENT
  Age: 62 Year
  Sex: Female
  Weight: 79 kg

DRUGS (5)
  1. PAZOPANIB [Suspect]
     Indication: SARCOMA
     Route: 048
     Dates: start: 20120518, end: 20121129
  2. GEMCITABINE [Suspect]
     Indication: SARCOMA
     Route: 065
     Dates: start: 20120518, end: 20121129
  3. OLMESARTAN [Concomitant]
     Indication: HYPERTENSION
     Dosage: 20MG PER DAY
     Route: 048
  4. HCT [Concomitant]
     Indication: HYPERTENSION
     Dosage: 25MG PER DAY
     Route: 048
  5. METOPROLOL [Concomitant]
     Indication: HYPERTENSION
     Dosage: 95MG PER DAY
     Route: 048

REACTIONS (1)
  - Hypoglycaemia [Recovered/Resolved]
